FAERS Safety Report 23559357 (Version 3)
Quarter: 2024Q2

REPORT INFORMATION
  Report Type: Report from Study
  Country: IE (occurrence: IE)
  Receive Date: 20240223
  Receipt Date: 20240402
  Transmission Date: 20240716
  Serious: Yes (Other)
  Sender: FDA-Public Use
  Company Number: IE-002147023-NVSC2023IE251053

PATIENT
  Age: 47 Year
  Sex: Male

DRUGS (2)
  1. KESIMPTA [Suspect]
     Active Substance: OFATUMUMAB
     Indication: Relapsing-remitting multiple sclerosis
     Dosage: 20 MG, QW, ONCE WEEKLY FOR WEEKS 0, 1, 2 AND 4. THEN ONCE MONTHLY
     Route: 058
     Dates: start: 20231121
  2. KESIMPTA [Suspect]
     Active Substance: OFATUMUMAB
     Indication: Multiple sclerosis
     Dosage: UNK, QMO
     Route: 058
     Dates: start: 20231128

REACTIONS (5)
  - Lower respiratory tract infection [Recovered/Resolved]
  - Pain [Unknown]
  - Influenza like illness [Unknown]
  - Cough [Unknown]
  - Wrong product administered [Unknown]

NARRATIVE: CASE EVENT DATE: 20240115
